FAERS Safety Report 20746641 (Version 3)
Quarter: 2022Q3

REPORT INFORMATION
  Report Type: Report from Study
  Country: US (occurrence: US)
  Receive Date: 20220425
  Receipt Date: 20220928
  Transmission Date: 20221027
  Serious: No
  Sender: FDA-Public Use
  Company Number: US-BRISTOL-MYERS SQUIBB COMPANY-2022-023640

PATIENT
  Age: 73 Year
  Sex: Male
  Weight: 136.07 kg

DRUGS (2)
  1. ELIQUIS [Suspect]
     Active Substance: APIXABAN
     Indication: Pulmonary embolism
     Route: 048
     Dates: start: 20220418
  2. ELIQUIS [Suspect]
     Active Substance: APIXABAN
     Route: 048

REACTIONS (8)
  - Pain in extremity [Unknown]
  - Contusion [Unknown]
  - Myalgia [Unknown]
  - Arthralgia [Unknown]
  - Fatigue [Unknown]
  - Asthenia [Unknown]
  - Haemoptysis [Unknown]
  - Abdominal discomfort [Unknown]

NARRATIVE: CASE EVENT DATE: 20220420
